FAERS Safety Report 10037254 (Version 1)
Quarter: 2014Q1

REPORT INFORMATION
  Report Type: Spontaneous
  Country: US (occurrence: None)
  Receive Date: 20140325
  Receipt Date: 20140325
  Transmission Date: 20141002
  Serious: Yes (Disabling)
  Sender: FDA-Public Use
  Company Number: None

PATIENT
  Age: 35 Year
  Sex: Female
  Weight: 86.18 kg

DRUGS (1)
  1. MIRVASO [Suspect]
     Indication: ROSACEA
     Dosage: 5 PEA-SIZE DROPS ON EA CHEEK
     Route: 061
     Dates: start: 20140317, end: 20140322

REACTIONS (2)
  - Erythema [None]
  - Burning sensation [None]
